FAERS Safety Report 8776456 (Version 2)
Quarter: 2012Q4

REPORT INFORMATION
  Report Type: 
  Country: JP (occurrence: JP)
  Receive Date: 20120910
  Receipt Date: 20121001
  Transmission Date: 20130627
  Serious: Yes (Other)
  Sender: FDA-Public Use
  Company Number: PHHY2012JP078101

PATIENT
  Age: 76 Year
  Sex: Female

DRUGS (10)
  1. FEMARA [Suspect]
     Indication: BREAST CANCER
     Dosage: 2.5 mg, daily
     Route: 048
     Dates: start: 20120416, end: 20120831
  2. EQUA [Suspect]
     Route: 048
  3. BOUIOUGITOU [Concomitant]
     Route: 048
  4. CANDESARTAN CILEXETIL W/HYDROCHLOROTHIAZIDE [Concomitant]
     Route: 048
  5. CANDESARTAN CILEXETIL W/HYDROCHLOROTHIAZIDE [Concomitant]
     Route: 048
  6. AMLODIN [Concomitant]
     Dosage: UNK
     Route: 048
     Dates: start: 2011
  7. ACINON [Concomitant]
     Dosage: UNK
     Route: 048
     Dates: start: 2011
  8. CIBENOL [Concomitant]
     Dosage: UNK
     Route: 048
     Dates: start: 2011
  9. CIPROXAN [Concomitant]
     Dosage: UNK
     Route: 048
     Dates: start: 2011
  10. RADIATION THERAPY [Concomitant]

REACTIONS (1)
  - Febrile neutropenia [Recovered/Resolved]
